FAERS Safety Report 16919747 (Version 4)
Quarter: 2019Q4

REPORT INFORMATION
  Report Type: Report from Study
  Country: US (occurrence: US)
  Receive Date: 20191015
  Receipt Date: 20191122
  Transmission Date: 20200122
  Serious: Yes (Death, Hospitalization)
  Sender: FDA-Public Use
  Company Number: US-ACTELION-A-US2016-143895

PATIENT
  Age: 67 Year
  Sex: Female
  Weight: 63.49 kg

DRUGS (7)
  1. LETAIRIS [Concomitant]
     Active Substance: AMBRISENTAN
  2. VELETRI [Suspect]
     Active Substance: EPOPROSTENOL
     Indication: PULMONARY HYPERTENSION
     Dosage: 68 NG/KG, PER MIN
     Route: 042
     Dates: start: 20110105
  3. VELETRI [Suspect]
     Active Substance: EPOPROSTENOL
     Dosage: 70 NG/KG, PER MIN
     Route: 042
     Dates: start: 201802
  4. ADCIRCA [Concomitant]
     Active Substance: TADALAFIL
  5. REMODULIN [Concomitant]
     Active Substance: TREPROSTINIL
     Route: 042
  6. VELETRI [Suspect]
     Active Substance: EPOPROSTENOL
     Dosage: 69.96 NG/KG, PER MIN
     Route: 042
     Dates: start: 201802
  7. WARFARIN [Concomitant]
     Active Substance: WARFARIN

REACTIONS (14)
  - Pain in jaw [Not Recovered/Not Resolved]
  - Constipation [Unknown]
  - Dyspnoea [Unknown]
  - Hepatomegaly [Unknown]
  - Post procedural complication [Fatal]
  - Arteriosclerosis [Unknown]
  - Sinus disorder [Unknown]
  - Malaise [Unknown]
  - Cardiac failure [Unknown]
  - Diarrhoea [Unknown]
  - Heart valve incompetence [Unknown]
  - Nasopharyngitis [Unknown]
  - Dyspnoea exertional [Not Recovered/Not Resolved]
  - Dysphagia [Unknown]

NARRATIVE: CASE EVENT DATE: 201806
